FAERS Safety Report 4944237-1 (Version None)
Quarter: 2006Q1

REPORT INFORMATION
  Report Type: 
  Country: None (occurrence: None)
  Receive Date: 20060308
  Receipt Date: 20060228
  Transmission Date: 20060701
  Serious: Yes (Other)
  Sender: FDA-Public Use
  Company Number: HQWYE104002MAR06

PATIENT
  Age: 18 Month
  Sex: Male

DRUGS (1)
  1. REFACTO [Suspect]
     Indication: HAEMOPHILIA
     Dosage: INTRAVENOUS
     Route: 042

REACTIONS (1)
  - FACTOR VIII INHIBITION [None]
